FAERS Safety Report 5836429-4 (Version None)
Quarter: 2008Q3

REPORT INFORMATION
  Report Type: 
  Country: None (occurrence: None)
  Receive Date: 20080807
  Receipt Date: 20080728
  Transmission Date: 20090109
  Serious: Yes (Other)
  Sender: FDA-Public Use
  Company Number: PHHY2008KR15625

PATIENT
  Sex: Female
  Weight: 64 kg

DRUGS (3)
  1. ZOMETA [Suspect]
     Indication: METASTASES TO BONE
     Dosage: 4 MG EVERY 4 WEEKS
     Route: 042
     Dates: start: 20080425, end: 20080701
  2. ADRIAMYCIN PFS [Concomitant]
  3. TAXOTERE [Concomitant]

REACTIONS (2)
  - GINGIVAL DISORDER [None]
  - OSTEONECROSIS [None]
